FAERS Safety Report 7352801-8 (Version None)
Quarter: 2011Q1

REPORT INFORMATION
  Report Type: 
  Country: None (occurrence: None)
  Receive Date: 20110315
  Receipt Date: 20110303
  Transmission Date: 20110831
  Serious: Yes (Other)
  Sender: FDA-Public Use
  Company Number: US-JNJFOC-20110302314

PATIENT
  Sex: Male
  Weight: 78.93 kg

DRUGS (7)
  1. REMICADE [Suspect]
     Indication: CROHN'S DISEASE
     Route: 042
  2. VITAMIN B-12 [Concomitant]
     Indication: VITAMIN SUPPLEMENTATION
     Route: 030
  3. LISINOPRIL [Concomitant]
     Indication: HYPERTENSION
     Route: 048
  4. SONATA [Concomitant]
     Indication: SLEEP DISORDER THERAPY
     Dosage: AS NECESSARY (DOSE UNSPECIFIED)
     Route: 048
  5. AMBIEN CR [Concomitant]
     Indication: SLEEP DISORDER THERAPY
     Route: 048
  6. TESTOSTERONE [Concomitant]
     Indication: HORMONE THERAPY
     Route: 030
  7. ADDERALL 10 [Concomitant]
     Indication: FATIGUE
     Route: 048

REACTIONS (7)
  - GASTROINTESTINAL HAEMORRHAGE [None]
  - ANXIETY [None]
  - HEADACHE [None]
  - VISION BLURRED [None]
  - EYE PAIN [None]
  - DRUG INEFFECTIVE [None]
  - ALOPECIA [None]
